FAERS Safety Report 16741249 (Version 1)
Quarter: 2019Q3

REPORT INFORMATION
  Report Type: Spontaneous
  Country: FI (occurrence: FI)
  Receive Date: 20190826
  Receipt Date: 20190826
  Transmission Date: 20191005
  Serious: Yes (Life-Threatening, Other)
  Sender: FDA-Public Use
  Company Number: FI-JNJFOC-20190827206

PATIENT
  Age: 75 Year
  Sex: Male

DRUGS (8)
  1. CIPRALEX [Concomitant]
     Active Substance: ESCITALOPRAM OXALATE
     Indication: DEPRESSION
     Dosage: 5,MG,DAILY
     Dates: start: 20190503, end: 20190802
  2. BISOPROLOL [Concomitant]
     Active Substance: BISOPROLOL
     Dosage: 1.25,MG,DAILY
  3. IBRUTINIB [Suspect]
     Active Substance: IBRUTINIB
     Indication: CHRONIC LYMPHOCYTIC LEUKAEMIA
     Dosage: 140,MG,DAILY
     Route: 048
     Dates: start: 20190425, end: 20190802
  4. ALLOPURINOL. [Concomitant]
     Active Substance: ALLOPURINOL
     Indication: CHRONIC LYMPHOCYTIC LEUKAEMIA
     Dosage: 1.25,MG,DAILY
  5. DISPERIN                           /00002701/ [Concomitant]
     Indication: CORONARY ARTERY DISEASE
     Dosage: 100,MG,DAILY
     Dates: end: 20190802
  6. NITROSID [Concomitant]
     Indication: CORONARY ARTERY DISEASE
  7. ROSUVASTATIN. [Concomitant]
     Active Substance: ROSUVASTATIN
     Dosage: 10,MG,DAILY
     Dates: end: 20190802
  8. COHEMIN [Concomitant]

REACTIONS (7)
  - Brain oedema [Recovered/Resolved with Sequelae]
  - Cerebrospinal fluid circulation disorder [Recovered/Resolved with Sequelae]
  - Cerebral haemorrhage [Recovered/Resolved with Sequelae]
  - Incorrect dose administered [Unknown]
  - Off label use [Unknown]
  - Subdural haemorrhage [Recovered/Resolved with Sequelae]
  - Subarachnoid haemorrhage [Recovered/Resolved with Sequelae]

NARRATIVE: CASE EVENT DATE: 20190425
